FAERS Safety Report 10990519 (Version 2)
Quarter: 2015Q3

REPORT INFORMATION
  Report Type: Spontaneous
  Country: US (occurrence: None)
  Receive Date: 20150330
  Receipt Date: 20150630
  Transmission Date: 20151125
  Serious: Yes (Other)
  Sender: FDA-Public Use
  Company Number: US-2015-10854

PATIENT
  Age: 18 Year
  Sex: Female

DRUGS (2)
  1. ABILIFY MAINTENA [Suspect]
     Active Substance: ARIPIPRAZOLE
     Indication: BIPOLAR DISORDER
     Route: 030
  2. ABILIFY MAINTENA [Suspect]
     Active Substance: ARIPIPRAZOLE
     Indication: SCHIZOPHRENIA
     Route: 030

REACTIONS (12)
  - Akathisia [None]
  - Lip swelling [None]
  - Dystonia [None]
  - Eyelid oedema [None]
  - Eye discharge [None]
  - Ocular hyperaemia [None]
  - Off label use [None]
  - Dyspnoea [None]
  - Insomnia [None]
  - Snoring [None]
  - Eye swelling [None]
  - Vision blurred [None]

NARRATIVE: CASE EVENT DATE: 201502
